FAERS Safety Report 5454491-8 (Version None)
Quarter: 2007Q3

REPORT INFORMATION
  Report Type: 
  Country: None (occurrence: None)
  Receive Date: 20070917
  Receipt Date: 20070228
  Transmission Date: 20080115
  Serious: Yes (Hospitalization)
  Sender: FDA-Public Use
  Company Number: US-ASTRAZENECA-2006UW12244

PATIENT
  Age: 562 Month
  Sex: Female
  Weight: 90.9 kg

DRUGS (3)
  1. SEROQUEL [Suspect]
     Indication: PSYCHOTIC DISORDER
     Dosage: 400 - 800 MG
     Route: 048
     Dates: start: 20030101
  2. RISPERDAL [Concomitant]
     Dates: start: 20020101
  3. ZYPREXA [Concomitant]
     Dates: start: 20010101

REACTIONS (5)
  - BLOOD CHOLESTEROL INCREASED [None]
  - BLOOD TRIGLYCERIDES INCREASED [None]
  - DIABETES MELLITUS [None]
  - HYPERLIPIDAEMIA [None]
  - OBESITY [None]
